FAERS Safety Report 14797809 (Version 1)
Quarter: 2018Q2

REPORT INFORMATION
  Report Type: Spontaneous
  Country: IT (occurrence: IT)
  Receive Date: 20180424
  Receipt Date: 20180424
  Transmission Date: 20180711
  Serious: Yes (Hospitalization)
  Sender: FDA-Public Use
  Company Number: IT-CONCORDIA PHARMACEUTICALS INC.-E2B_00011300

PATIENT
  Age: 95 Year
  Sex: Female

DRUGS (6)
  1. PANTOPRAZOLE [Concomitant]
     Active Substance: PANTOPRAZOLE
  2. ZYLLT [Concomitant]
     Active Substance: CLOPIDOGREL BISULFATE
  3. RAMIPRIL. [Concomitant]
     Active Substance: RAMIPRIL
  4. LANOXIN [Suspect]
     Active Substance: DIGOXIN
     Indication: CARDIAC FAILURE
     Route: 048
     Dates: start: 20170101, end: 20170905
  5. LASIX [Concomitant]
     Active Substance: FUROSEMIDE
  6. CARDICOR [Concomitant]
     Active Substance: BISOPROLOL

REACTIONS (3)
  - Dyspnoea exertional [Unknown]
  - Chest pain [Unknown]
  - Asthenia [Unknown]

NARRATIVE: CASE EVENT DATE: 20170905
